FAERS Safety Report 7817852-5 (Version None)
Quarter: 2011Q4

REPORT INFORMATION
  Report Type: 
  Country: None (occurrence: None)
  Receive Date: 20111017
  Receipt Date: 20111010
  Transmission Date: 20120403
  Serious: Yes (Hospitalization, Disabling, Other)
  Sender: FDA-Public Use
  Company Number: US-MERCK-0806USA02300

PATIENT
  Age: 51 Year
  Sex: Female
  Weight: 89 kg

DRUGS (8)
  1. FOSAMAX [Suspect]
     Indication: OSTEOPOROSIS
     Route: 048
     Dates: start: 20010901, end: 20080301
  2. VITAMINS (UNSPECIFIED) [Concomitant]
     Route: 065
     Dates: start: 19910101
  3. FOSAMAX [Suspect]
     Indication: OSTEOPOROSIS PROPHYLAXIS
     Route: 048
     Dates: start: 20010901, end: 20080301
  4. FOSAMAX [Suspect]
     Route: 048
     Dates: start: 20080401, end: 20080501
  5. FOSAMAX [Suspect]
     Route: 048
     Dates: start: 20080401, end: 20080501
  6. PRILOSEC [Concomitant]
     Indication: GASTROOESOPHAGEAL REFLUX DISEASE
     Route: 048
     Dates: start: 20010601
  7. SYNTHROID [Concomitant]
     Indication: HYPOTHYROIDISM
     Route: 065
  8. CALCIUM (UNSPECIFIED) [Concomitant]
     Route: 065
     Dates: start: 19910101

REACTIONS (37)
  - INTERVERTEBRAL DISC DEGENERATION [None]
  - HYPERTENSION [None]
  - HAEMANGIOMA OF LIVER [None]
  - TOOTH ANKYLOSIS [None]
  - SPONDYLOLISTHESIS [None]
  - PULMONARY EMBOLISM [None]
  - HIATUS HERNIA [None]
  - ROTATOR CUFF SYNDROME [None]
  - COLLAGEN DISORDER [None]
  - FEMUR FRACTURE [None]
  - DEEP VEIN THROMBOSIS [None]
  - FRACTURE [None]
  - MUSCLE STRAIN [None]
  - SCLERAL DISCOLOURATION [None]
  - BONE DISORDER [None]
  - WEIGHT INCREASED [None]
  - BONE PAIN [None]
  - FALL [None]
  - INTERVERTEBRAL DISC PROTRUSION [None]
  - LUMBAR RADICULOPATHY [None]
  - RIB FRACTURE [None]
  - VERTEBRAL COLUMN MASS [None]
  - SINUSITIS [None]
  - INCISIONAL DRAINAGE [None]
  - HEAD INJURY [None]
  - SINUS DISORDER [None]
  - PAIN IN EXTREMITY [None]
  - BURSITIS [None]
  - SPINAL OSTEOARTHRITIS [None]
  - BREAST CALCIFICATIONS [None]
  - CELLULITIS [None]
  - BLOOD CHOLESTEROL INCREASED [None]
  - CHONDROMALACIA [None]
  - LUMBAR SPINAL STENOSIS [None]
  - SYNOVIAL CYST [None]
  - FRACTURE DELAYED UNION [None]
  - OSTEOMA [None]
